FAERS Safety Report 11518063 (Version 2)
Quarter: 2015Q4

REPORT INFORMATION
  Report Type: Spontaneous
  Country: US (occurrence: US)
  Receive Date: 20150917
  Receipt Date: 20151216
  Transmission Date: 20160304
  Serious: No
  Sender: FDA-Public Use
  Company Number: US-GALDERMA-US15006363

PATIENT
  Sex: Male

DRUGS (3)
  1. BPO [Concomitant]
     Active Substance: BENZOYL PEROXIDE
     Route: 061
     Dates: start: 2013
  2. ZYRTEC [Concomitant]
     Active Substance: CETIRIZINE HYDROCHLORIDE
     Indication: HYPERSENSITIVITY
  3. MIRVASO [Suspect]
     Active Substance: BRIMONIDINE TARTRATE
     Indication: ERYTHEMA
     Dosage: 0.33%
     Route: 061
     Dates: start: 2013, end: 2013

REACTIONS (7)
  - Condition aggravated [Recovered/Resolved]
  - Vasodilatation [Recovered/Resolved]
  - Hyperaesthesia [Recovered/Resolved]
  - Anxiety [Recovered/Resolved]
  - Product use issue [Recovered/Resolved]
  - Skin discomfort [Recovered/Resolved]
  - Erythema [Recovered/Resolved]
